FAERS Safety Report 15645369 (Version 1)
Quarter: 2018Q4

REPORT INFORMATION
  Report Type: Spontaneous
  Country: US (occurrence: US)
  Receive Date: 20181121
  Receipt Date: 20181121
  Transmission Date: 20190205
  Serious: Yes (Other)
  Sender: FDA-Public Use
  Company Number: US-SHIRE-US201844725

PATIENT
  Sex: Female

DRUGS (1)
  1. GATTEX [Suspect]
     Active Substance: TEDUGLUTIDE\WATER
     Indication: SHORT-BOWEL SYNDROME
     Route: 065

REACTIONS (6)
  - Loss of control of legs [Unknown]
  - Product physical consistency issue [Unknown]
  - Fall [Unknown]
  - Seizure [Unknown]
  - Gait disturbance [Unknown]
  - Muscle spasms [Unknown]
